FAERS Safety Report 11216233 (Version 1)
Quarter: 2015Q2

REPORT INFORMATION
  Report Type: Spontaneous
  Country: FR (occurrence: FR)
  Receive Date: 20150624
  Receipt Date: 20150624
  Transmission Date: 20150821
  Serious: Yes (Hospitalization, Other)
  Sender: FDA-Public Use
  Company Number: FR-GILEAD-2015-0159493

PATIENT
  Age: 73 Year
  Sex: Female

DRUGS (5)
  1. DEROXAT [Suspect]
     Active Substance: PAROXETINE HYDROCHLORIDE
     Indication: PRODUCT USED FOR UNKNOWN INDICATION
     Dosage: 20 MG, QD
     Route: 048
     Dates: end: 20150405
  2. LETROZOLE. [Suspect]
     Active Substance: LETROZOLE
     Indication: INTRADUCTAL PROLIFERATIVE BREAST LESION
     Dosage: 2.5 MG, QD
     Route: 048
     Dates: start: 201306
  3. ATACAND [Suspect]
     Active Substance: CANDESARTAN CILEXETIL
     Indication: HYPERTENSION
     Dosage: UNK
     Route: 048
     Dates: end: 20150405
  4. VIREAD [Suspect]
     Active Substance: TENOFOVIR DISOPROXIL FUMARATE
     Indication: HEPATITIS B
     Dosage: 245 MG, QD
     Route: 048
  5. OMEPRAZOL                          /00661201/ [Suspect]
     Active Substance: OMEPRAZOLE
     Indication: PRODUCT USED FOR UNKNOWN INDICATION
     Dosage: 20 MG, QD
     Route: 048
     Dates: end: 20150405

REACTIONS (1)
  - Ischaemic cerebral infarction [Not Recovered/Not Resolved]

NARRATIVE: CASE EVENT DATE: 20150405
